FAERS Safety Report 4945785-0 (Version None)
Quarter: 2006Q1

REPORT INFORMATION
  Report Type: 
  Country: None (occurrence: None)
  Receive Date: 20060117
  Receipt Date: 20050201
  Transmission Date: 20060701
  Serious: Yes (Hospitalization)
  Sender: FDA-Public Use
  Company Number: A03200500340

PATIENT
  Age: 52 Year
  Sex: Male
  Weight: 74.37 kg

DRUGS (6)
  1. PLAVIX [Suspect]
     Indication: QUADRUPLE VESSEL BYPASS GRAFT
     Dosage: 75 MG QD - ORAL
     Route: 048
     Dates: start: 19970101
  2. ASPIRIN ENTERIC COATED K.P. - ACETYLSALICYLIC ACID - TABLET - 325 MG [Suspect]
     Indication: ANTIPLATELET THERAPY
     Dosage: 325 MG QD - ORAL
     Route: 048
     Dates: start: 19950101
  3. RAMIPRIL [Concomitant]
  4. VERAPAMIL [Concomitant]
  5. ATENOLOL [Concomitant]
  6. ATORVASTATIN CALCIUM [Concomitant]

REACTIONS (3)
  - ANGINA PECTORIS [None]
  - MYOCARDIAL INFARCTION [None]
  - STOMACH DISCOMFORT [None]
